FAERS Safety Report 9675946 (Version 1)
Quarter: 2013Q4

REPORT INFORMATION
  Report Type: Spontaneous
  Country: US (occurrence: US)
  Receive Date: 20131107
  Receipt Date: 20131107
  Transmission Date: 20140711
  Serious: Yes (Other)
  Sender: FDA-Public Use
  Company Number: US-009507513-1310USA013331

PATIENT
  Sex: Female

DRUGS (4)
  1. VICTRELIS [Suspect]
     Indication: HEPATITIS C
     Dosage: UNK
     Dates: start: 20130325, end: 20131024
  2. REBETOL [Suspect]
     Indication: HEPATITIS C
     Dosage: 5 DF, UNK
     Dates: start: 20130224, end: 2013
  3. REBETOL [Suspect]
     Dosage: 3 DF, UNK
     Dates: start: 2013, end: 20131024
  4. PEGASYS [Suspect]
     Indication: HEPATITIS C
     Dosage: UNK
     Dates: start: 20130224, end: 20131024

REACTIONS (5)
  - Transfusion [Unknown]
  - Anaemia [Unknown]
  - Dysgeusia [Unknown]
  - Dizziness [Unknown]
  - Fatigue [Unknown]
